FAERS Safety Report 4577519-6 (Version None)
Quarter: 2005Q1

REPORT INFORMATION
  Report Type: 
  Country: None (occurrence: None)
  Receive Date: 20050208
  Receipt Date: 20050131
  Transmission Date: 20050727
  Serious: Yes (Death)
  Sender: FDA-Public Use
  Company Number: GB-2005-000677

PATIENT
  Age: 66 Year
  Sex: Male
  Weight: 78 kg

DRUGS (3)
  1. FLUDARABINE PHOSPHATE [Suspect]
     Indication: CHRONIC LYMPHOCYTIC LEUKAEMIA
     Dosage: 80 MG, ORAL
     Route: 048
     Dates: start: 20050111, end: 20050113
  2. CYCLOPHOSPHAMIDE [Suspect]
     Indication: CHRONIC LYMPHOCYTIC LEUKAEMIA
     Dosage: 500 MG, ORAL
     Route: 048
     Dates: start: 20050111, end: 20050113
  3. DOMPERIDONE (DOMPERIDONE) [Concomitant]

REACTIONS (3)
  - CARDIAC ARREST [None]
  - RENAL FAILURE [None]
  - TUMOUR LYSIS SYNDROME [None]
